FAERS Safety Report 6186359-6 (Version None)
Quarter: 2009Q2

REPORT INFORMATION
  Report Type: 
  Country: None (occurrence: None)
  Receive Date: 20090511
  Receipt Date: 20090430
  Transmission Date: 20091009
  Serious: Yes (Other)
  Sender: FDA-Public Use
  Company Number: EG-JNJCH-2009012435

PATIENT
  Sex: Male

DRUGS (1)
  1. ROGAINE [Suspect]
     Indication: DRUG USE FOR UNKNOWN INDICATION
     Dosage: TEXT:UNSPECIFIED
     Route: 061

REACTIONS (4)
  - BLOOD PRESSURE INCREASED [None]
  - CARDIAC HYPERTROPHY [None]
  - DIZZINESS [None]
  - HEADACHE [None]
